FAERS Safety Report 7055506-6 (Version None)
Quarter: 2010Q4

REPORT INFORMATION
  Report Type: 
  Country: None (occurrence: None)
  Receive Date: 20101021
  Receipt Date: 20101014
  Transmission Date: 20110411
  Serious: Yes (Death)
  Sender: FDA-Public Use
  Company Number: US-GENZYME-POMP-1001157

PATIENT
  Sex: Female
  Weight: 47.5 kg

DRUGS (1)
  1. LUMIZYME [Suspect]
     Indication: GLYCOGEN STORAGE DISEASE TYPE II
     Dosage: 950 MG, QOW
     Route: 042
     Dates: start: 20100820, end: 20101004

REACTIONS (1)
  - DEATH [None]
